FAERS Safety Report 7572186-1 (Version None)
Quarter: 2011Q2

REPORT INFORMATION
  Report Type: 
  Country: None (occurrence: None)
  Receive Date: 20110624
  Receipt Date: 20110611
  Transmission Date: 20111010
  Serious: Yes (Other)
  Sender: FDA-Public Use
  Company Number: PHHY2011US54158

PATIENT
  Sex: Male

DRUGS (3)
  1. TESTOSTERONE [Suspect]
     Indication: MENOPAUSAL SYMPTOMS
     Dosage: UNK UKN, UNK
     Route: 062
  2. ESTROGEN NOS [Suspect]
     Indication: MENOPAUSAL SYMPTOMS
     Dosage: UNK UKN, UNK
     Route: 062
  3. ESTRADIOL [Suspect]
     Indication: MENOPAUSAL SYMPTOMS
     Dosage: UNK UKN, UNK
     Route: 062

REACTIONS (6)
  - GENDER IDENTITY DISORDER [None]
  - GROWTH ACCELERATED [None]
  - OESTRADIOL INCREASED [None]
  - GYNAECOMASTIA [None]
  - BONE DISORDER [None]
  - BLOOD OESTROGEN INCREASED [None]
